FAERS Safety Report 11101064 (Version 1)
Quarter: 2015Q2

REPORT INFORMATION
  Report Type: Spontaneous
  Country: JP (occurrence: JP)
  Receive Date: 20150508
  Receipt Date: 20150508
  Transmission Date: 20150821
  Serious: Yes (Other)
  Sender: FDA-Public Use
  Company Number: JP-ELI_LILLY_AND_COMPANY-JP201504010399

PATIENT
  Age: 70 Year
  Sex: Male

DRUGS (5)
  1. ALIMTA [Suspect]
     Active Substance: PEMETREXED DISODIUM
     Dosage: 500 MG/M2, OTHER
     Route: 042
  2. ALIMTA [Suspect]
     Active Substance: PEMETREXED DISODIUM
     Dosage: 333 MG/M2, OTHER
     Route: 042
  3. CISPLATIN. [Suspect]
     Active Substance: CISPLATIN
     Dosage: 75 MG/M2, OTHER
     Route: 065
  4. CISPLATIN. [Suspect]
     Active Substance: CISPLATIN
     Indication: PLEURAL MESOTHELIOMA MALIGNANT
     Dosage: 37.5 UNK, UNK
     Route: 065
  5. ALIMTA [Suspect]
     Active Substance: PEMETREXED DISODIUM
     Indication: PLEURAL MESOTHELIOMA MALIGNANT
     Dosage: 167 MG/M2, OTHER
     Route: 042

REACTIONS (24)
  - Vomiting [Unknown]
  - Abdominal pain upper [Recovered/Resolved]
  - Malaise [Recovered/Resolved]
  - Alopecia [Unknown]
  - Hypertension [Unknown]
  - Aspartate aminotransferase increased [Recovered/Resolved]
  - Nausea [Unknown]
  - Decreased appetite [Unknown]
  - Constipation [Unknown]
  - Alanine aminotransferase increased [Unknown]
  - Dysgeusia [Unknown]
  - Blood bilirubin increased [Recovering/Resolving]
  - Tinnitus [Unknown]
  - Neutrophil count decreased [Unknown]
  - Diarrhoea [Recovered/Resolved]
  - White blood cell count decreased [Unknown]
  - Hyponatraemia [Recovered/Resolved]
  - Hiccups [Unknown]
  - Pruritus [Recovered/Resolved]
  - Headache [Recovered/Resolved]
  - Haemoglobin decreased [Unknown]
  - Oedema peripheral [Recovered/Resolved]
  - Gamma-glutamyltransferase increased [Unknown]
  - Pollakiuria [Recovered/Resolved]
